FAERS Safety Report 15819704 (Version 1)
Quarter: 2019Q1

REPORT INFORMATION
  Report Type: Spontaneous
  Country: US (occurrence: US)
  Receive Date: 20190114
  Receipt Date: 20190114
  Transmission Date: 20190417
  Serious: Yes (Hospitalization)
  Sender: FDA-Public Use
  Company Number: US-UNITED THERAPEUTICS-UNT-2019-000337

PATIENT
  Age: 48 Year
  Sex: Male
  Weight: 97.51 kg

DRUGS (1)
  1. REMODULIN [Suspect]
     Active Substance: TREPROSTINIL
     Indication: PULMONARY ARTERIAL HYPERTENSION
     Dosage: 0.014 ?G/KG, CONTINUING
     Route: 058
     Dates: start: 20181116

REACTIONS (3)
  - Respiratory tract infection viral [Unknown]
  - Bronchitis [Unknown]
  - Syncope [Unknown]

NARRATIVE: CASE EVENT DATE: 20181230
